FAERS Safety Report 23762082 (Version 2)
Quarter: 2024Q2

REPORT INFORMATION
  Report Type: Spontaneous
  Country: FR (occurrence: FR)
  Receive Date: 20240419
  Receipt Date: 20240520
  Transmission Date: 20240715
  Serious: Yes (Life-Threatening, Hospitalization)
  Sender: FDA-Public Use
  Company Number: FR-AMGEN-FRASP2024076706

PATIENT

DRUGS (6)
  1. PANITUMUMAB [Suspect]
     Active Substance: PANITUMUMAB
     Indication: Metastatic squamous cell carcinoma
     Dosage: UNK
     Route: 065
  2. CETUXIMAB [Suspect]
     Active Substance: CETUXIMAB
     Indication: Metastatic squamous cell carcinoma
     Dosage: UNK
     Route: 065
  3. FLUOROURACIL [Suspect]
     Active Substance: FLUOROURACIL
     Indication: Metastatic squamous cell carcinoma
     Dosage: UNK
     Route: 065
  4. PEMBROLIZUMAB [Suspect]
     Active Substance: PEMBROLIZUMAB
     Indication: Metastatic squamous cell carcinoma
     Dosage: UNK
     Route: 065
  5. CARBOPLATIN [Suspect]
     Active Substance: CARBOPLATIN
     Indication: Metastatic squamous cell carcinoma
     Dosage: UNK
     Route: 065
  6. CEMIPLIMAB [Suspect]
     Active Substance: CEMIPLIMAB
     Indication: Metastatic squamous cell carcinoma
     Dosage: UNK
     Route: 065

REACTIONS (10)
  - Adverse event [Unknown]
  - Anaphylactic reaction [Unknown]
  - Angioedema [Unknown]
  - Cardiac failure [Unknown]
  - Colitis [Unknown]
  - Cholangitis sclerosing [Unknown]
  - Drug reaction with eosinophilia and systemic symptoms [Unknown]
  - Myositis [Unknown]
  - Renal failure [Unknown]
  - Anaemia [Unknown]
